FAERS Safety Report 6816896-X (Version None)
Quarter: 2010Q3

REPORT INFORMATION
  Report Type: 
  Country: None (occurrence: None)
  Receive Date: 20100706
  Receipt Date: 20100623
  Transmission Date: 20110219
  Serious: Yes (Hospitalization)
  Sender: FDA-Public Use
  Company Number: DE-JNJFOC-20080601603

PATIENT
  Age: 66 Year
  Sex: Male
  Weight: 67.5 kg

DRUGS (4)
  1. REMICADE [Suspect]
     Indication: RHEUMATOID ARTHRITIS
     Route: 042
  2. METHOTREXATE [Concomitant]
  3. PREDNISOLONE [Concomitant]
  4. DICLOFENAC SODIUM [Concomitant]
     Route: 065

REACTIONS (7)
  - ARTHRODESIS [None]
  - GASTRITIS [None]
  - IMPAIRED HEALING [None]
  - SKIN ULCER [None]
  - WOUND [None]
  - WOUND INFECTION PSEUDOMONAS [None]
  - WOUND INFECTION STAPHYLOCOCCAL [None]
